FAERS Safety Report 7151397-3 (Version None)
Quarter: 2010Q4

REPORT INFORMATION
  Report Type: 
  Country: None (occurrence: None)
  Receive Date: 20101210
  Receipt Date: 20101209
  Transmission Date: 20110411
  Serious: Yes (Hospitalization, Disabling, Other)
  Sender: FDA-Public Use
  Company Number: US-MERCK-0906USA04971

PATIENT
  Age: 55 Year
  Sex: Female
  Weight: 88 kg

DRUGS (4)
  1. FOSAMAX [Suspect]
     Indication: OSTEOPOROSIS
     Route: 048
     Dates: start: 20010111, end: 20070901
  2. FOSAMAX [Suspect]
     Route: 048
     Dates: start: 20010111, end: 20010912
  3. FOSAMAX [Suspect]
     Route: 048
     Dates: start: 20011001
  4. FOSAMAX [Suspect]
     Route: 048
     Dates: start: 19990701

REACTIONS (30)
  - ABDOMINAL HERNIA [None]
  - ABSCESS [None]
  - ADVERSE DRUG REACTION [None]
  - BACK PAIN [None]
  - BRONCHITIS CHRONIC [None]
  - CATARACT [None]
  - COLONIC POLYP [None]
  - CONSTIPATION [None]
  - DEPRESSION [None]
  - DERMATITIS ALLERGIC [None]
  - DIARRHOEA [None]
  - DYSPEPSIA [None]
  - EDENTULOUS [None]
  - FOOT FRACTURE [None]
  - GINGIVAL BLEEDING [None]
  - GINGIVITIS [None]
  - IMPAIRED HEALING [None]
  - JAW DISORDER [None]
  - LUMBAR SPINAL STENOSIS [None]
  - MEAN CELL VOLUME INCREASED [None]
  - OEDEMA [None]
  - ORAL FIBROMA [None]
  - ORAL INFECTION [None]
  - ORAL TORUS [None]
  - OSTEOARTHRITIS [None]
  - OSTEONECROSIS OF JAW [None]
  - OVARIAN DISORDER [None]
  - SINUSITIS [None]
  - TOOTH DISORDER [None]
  - VITREOUS FLOATERS [None]
